FAERS Safety Report 4533410-2 (Version None)
Quarter: 2004Q4

REPORT INFORMATION
  Report Type: 
  Country: None (occurrence: None)
  Receive Date: 20041221
  Receipt Date: 20041112
  Transmission Date: 20050328
  Serious: Yes (Death)
  Sender: FDA-Public Use
  Company Number: US-ROCHE-385980

PATIENT
  Age: 71 Year
  Sex: Male

DRUGS (15)
  1. ROCEPHIN [Suspect]
     Indication: DRUG USE FOR UNKNOWN INDICATION
     Route: 042
     Dates: start: 20040401, end: 20040401
  2. AVELOX [Suspect]
     Indication: PNEUMONIA
     Route: 042
     Dates: start: 20040401, end: 20040401
  3. ALBUTEROL [Suspect]
     Indication: PNEUMONIA
     Route: 055
     Dates: start: 20040401, end: 20040401
  4. ATROVENT [Suspect]
     Indication: PNEUMONIA
     Dosage: STRENGTH REPORTED AS 2.5ML.
     Route: 055
     Dates: start: 20040401, end: 20040401
  5. TYLENOL (CAPLET) [Suspect]
     Indication: PAIN
     Route: 048
     Dates: start: 20040401
  6. LISINOPRIL [Concomitant]
  7. HYDROCHLOROTHIAZIDE [Concomitant]
     Dates: end: 20040401
  8. COUMADIN [Concomitant]
     Dates: start: 20040315
  9. ATENOLOL [Concomitant]
  10. BCG VACCINE [Concomitant]
     Dates: start: 20040115, end: 20040315
  11. ATROVENT [Concomitant]
  12. SEREVENT [Concomitant]
  13. AZMACORT [Concomitant]
  14. FLOMAX [Concomitant]
     Dates: start: 20040331
  15. MULTI-VITAMIN [Concomitant]

REACTIONS (20)
  - ACUTE PULMONARY OEDEMA [None]
  - APNOEA [None]
  - ATRIAL FIBRILLATION [None]
  - BRADYCARDIA [None]
  - CARDIAC ARREST [None]
  - CARDIAC FAILURE CONGESTIVE [None]
  - CARDIO-RESPIRATORY ARREST [None]
  - CHRONIC OBSTRUCTIVE AIRWAYS DISEASE [None]
  - COMA [None]
  - CONFUSIONAL STATE [None]
  - ELECTROMECHANICAL DISSOCIATION [None]
  - HAEMOPTYSIS [None]
  - MYOCARDIAL INFARCTION [None]
  - PNEUMONIA [None]
  - PULMONARY EMBOLISM [None]
  - PULMONARY OEDEMA [None]
  - PULSE ABSENT [None]
  - RENAL FAILURE [None]
  - SEPSIS [None]
  - VENTRICULAR HYPERTROPHY [None]
